FAERS Safety Report 23067005 (Version 2)
Quarter: 2023Q4

REPORT INFORMATION
  Report Type: Spontaneous
  Country: US (occurrence: None)
  Receive Date: 20231016
  Receipt Date: 20231112
  Transmission Date: 20240110
  Serious: Yes (Hospitalization, Other)
  Sender: FDA-Public Use
  Company Number: US-Emmaus Medical, Inc.-EMM202309-000261

PATIENT
  Age: 52 Year
  Sex: Female
  Weight: 71.214 kg

DRUGS (10)
  1. ENDARI [Suspect]
     Active Substance: GLUTAMINE
     Indication: Thalassaemia sickle cell
     Dosage: 15 G
     Route: 048
     Dates: start: 20230909, end: 20231012
  2. COUMADIN [Concomitant]
     Active Substance: WARFARIN SODIUM
     Indication: Protein S deficiency
     Dosage: 7.5 MG
     Route: 048
  3. NARCAN [Concomitant]
     Active Substance: NALOXONE HYDROCHLORIDE
     Indication: Product used for unknown indication
     Dosage: 4 MG/0.1 ML (LIQUID)
     Route: 045
  4. VITAMIN B12 [Concomitant]
     Active Substance: CYANOCOBALAMIN
     Indication: Product used for unknown indication
     Dosage: 1,000 MCG (ONE TABLET)
     Route: 048
  5. FOLIC ACID [Concomitant]
     Active Substance: FOLIC ACID
     Indication: Sickle cell disease
     Dosage: 2 MG (TWO TABLETS)
     Route: 048
  6. Boric acid vaginal [Concomitant]
     Indication: Product used for unknown indication
     Dosage: ONE SUPPOSITORY
     Route: 067
  7. METROGEL VAGINAL [Concomitant]
     Active Substance: METRONIDAZOLE
     Indication: Bacterial vaginosis
     Dosage: ONE APPLICATORFUL
     Route: 067
  8. VALTREX [Concomitant]
     Active Substance: VALACYCLOVIR HYDROCHLORIDE
     Indication: Herpes virus infection
     Dosage: TWO TABLETS
     Route: 048
  9. LEVONORGESTREL [Concomitant]
     Active Substance: LEVONORGESTREL
     Indication: Product used for unknown indication
     Dosage: 20 MCG
     Route: 015
  10. Vitamin D-1000 units Max ST [Concomitant]
     Indication: Vitamin D decreased
     Dosage: 1000 UNITS (ONE TABLET)
     Route: 048

REACTIONS (7)
  - Pyrexia [Recovered/Resolved]
  - Pulmonary oedema [Recovered/Resolved]
  - Urinary tract infection [Unknown]
  - Iron overload [Unknown]
  - Sickle cell anaemia with crisis [Not Recovered/Not Resolved]
  - Gastrointestinal disorder [Not Recovered/Not Resolved]
  - Headache [Recovered/Resolved]

NARRATIVE: CASE EVENT DATE: 20230101
